FAERS Safety Report 11854501 (Version 2)
Quarter: 2016Q1

REPORT INFORMATION
  Report Type: Spontaneous
  Country: US (occurrence: US)
  Receive Date: 20151221
  Receipt Date: 20160222
  Transmission Date: 20160526
  Serious: No
  Sender: FDA-Public Use
  Company Number: PHEH2015US026384

PATIENT
  Age: 17 Year
  Sex: Male

DRUGS (2)
  1. TRILEPTAL [Suspect]
     Active Substance: OXCARBAZEPINE
     Indication: BIPOLAR DISORDER
     Dosage: UNK
     Route: 065
  2. TRILEPTAL [Suspect]
     Active Substance: OXCARBAZEPINE
     Indication: PSYCHOTIC DISORDER
     Dosage: INCREASED HIS DOSE ON FRIDAY
     Route: 065

REACTIONS (3)
  - Irritability [Unknown]
  - Product use issue [Unknown]
  - Agitation [Unknown]
